FAERS Safety Report 23752819 (Version 1)
Quarter: 2024Q2

REPORT INFORMATION
  Report Type: Spontaneous
  Country: US (occurrence: None)
  Receive Date: 20240417
  Receipt Date: 20240417
  Transmission Date: 20240716
  Serious: No
  Sender: FDA-Public Use
  Company Number: None

PATIENT
  Sex: Female

DRUGS (2)
  1. OPSUMIT [Suspect]
     Active Substance: MACITENTAN
     Indication: Pulmonary arterial hypertension
     Dosage: FREQUENCY : DAILY;?
     Route: 048
     Dates: start: 202401
  2. TYVASO [Concomitant]
     Active Substance: TREPROSTINIL

REACTIONS (8)
  - Middle insomnia [None]
  - Movement disorder [None]
  - Vision blurred [None]
  - Vomiting [None]
  - Swelling [None]
  - Peripheral swelling [None]
  - Pulmonary oedema [None]
  - Pneumonia [None]
